FAERS Safety Report 9486522 (Version 1)
Quarter: 2013Q3

REPORT INFORMATION
  Report Type: Spontaneous
  Country: US (occurrence: None)
  Receive Date: 20130827
  Receipt Date: 20130827
  Transmission Date: 20140515
  Serious: Yes (Other)
  Sender: FDA-Public Use
  Company Number: None

PATIENT
  Age: 56 Year
  Sex: Male
  Weight: 86.18 kg

DRUGS (1)
  1. LIPITOR [Suspect]
     Indication: HYPERLIPIDAEMIA
     Route: 048

REACTIONS (8)
  - Amnesia [None]
  - Chromaturia [None]
  - Cardiac disorder [None]
  - Deafness [None]
  - Myalgia [None]
  - Muscle spasms [None]
  - Asthenia [None]
  - Weight decreased [None]
